FAERS Safety Report 17442900 (Version 4)
Quarter: 2021Q1

REPORT INFORMATION
  Report Type: Report from Study
  Country: None (occurrence: FR)
  Receive Date: 20200221
  Receipt Date: 20210324
  Transmission Date: 20210419
  Serious: Yes (Hospitalization)
  Sender: FDA-Public Use
  Company Number: FR-ABBVIE-20K-056-3286800-00

PATIENT
  Age: 68 Year
  Sex: Female

DRUGS (2)
  1. DUODOPA [Suspect]
     Active Substance: CARBIDOPA\LEVODOPA
     Dosage: 3 AND 4 EXTRA DOSES WITH 30 MIN INTERVALS
     Route: 050
  2. DUODOPA [Suspect]
     Active Substance: CARBIDOPA\LEVODOPA
     Indication: PARKINSON^S DISEASE
     Dosage: MORNING DOSE 5.5 ML, CONTINUOUS FLOW RATE DURING THE DAY: 4.1?ML, 1.5 ML EXTRA DOSE
     Route: 050
     Dates: start: 20171205

REACTIONS (5)
  - Hospitalisation [Unknown]
  - Freezing phenomenon [Not Recovered/Not Resolved]
  - Stoma site hypergranulation [Not Recovered/Not Resolved]
  - Device related infection [Unknown]
  - Stoma site discharge [Not Recovered/Not Resolved]
